FAERS Safety Report 19161734 (Version 4)
Quarter: 2021Q3

REPORT INFORMATION
  Report Type: Spontaneous
  Country: US (occurrence: US)
  Receive Date: 20210421
  Receipt Date: 20210720
  Transmission Date: 20211014
  Serious: Yes (Hospitalization, Other)
  Sender: FDA-Public Use
  Company Number: US-BEH-2021130632

PATIENT
  Age: 11 Year
  Sex: Male
  Weight: 100 kg

DRUGS (6)
  1. IDELVION [Suspect]
     Active Substance: COAGULATION FACTOR IX RECOMBINANT HUMAN
     Dosage: 4200 INTERNATIONAL UNIT
     Route: 042
     Dates: start: 2021
  2. IDELVION [Suspect]
     Active Substance: COAGULATION FACTOR IX RECOMBINANT HUMAN
     Dosage: 4200 INTERNATIONAL UNIT
     Route: 042
     Dates: start: 2021
  3. IDELVION [Suspect]
     Active Substance: COAGULATION FACTOR IX RECOMBINANT HUMAN
     Dosage: 4200 INTERNATIONAL UNIT
     Route: 042
  4. IDELVION [Suspect]
     Active Substance: COAGULATION FACTOR IX RECOMBINANT HUMAN
     Dosage: 4200 INTERNATIONAL UNIT
     Route: 042
  5. IDELVION [Suspect]
     Active Substance: COAGULATION FACTOR IX RECOMBINANT HUMAN
     Indication: FACTOR IX DEFICIENCY
     Dosage: 4200 INTERNATIONAL UNIT, EVERY 10 DAYS AND PRN
     Route: 042
     Dates: start: 2021
  6. IDELVION [Suspect]
     Active Substance: COAGULATION FACTOR IX RECOMBINANT HUMAN
     Indication: FACTOR IX DEFICIENCY
     Dosage: 4200 INTERNATIONAL UNIT, EVERY 10 DAYS AND PRN
     Route: 042
     Dates: start: 2021

REACTIONS (6)
  - Urinary bladder haemorrhage [Unknown]
  - Nephrolithiasis [Unknown]
  - Haemarthrosis [Unknown]
  - Urinary bladder haemorrhage [Unknown]
  - Haemorrhage [Unknown]
  - Nephrolithiasis [Unknown]

NARRATIVE: CASE EVENT DATE: 2021
